FAERS Safety Report 7272227-5 (Version None)
Quarter: 2011Q1

REPORT INFORMATION
  Report Type: 
  Country: None (occurrence: None)
  Receive Date: 20110203
  Receipt Date: 20110124
  Transmission Date: 20110831
  Serious: Yes (Other)
  Sender: FDA-Public Use
  Company Number: PHHY2011US05574

PATIENT
  Sex: Male

DRUGS (2)
  1. GLEEVEC [Suspect]
     Indication: CHRONIC MYELOID LEUKAEMIA
     Dosage: 600 MG
     Route: 048
  2. GLEEVEC [Suspect]
     Dosage: 400 MG, QD
     Route: 048
     Dates: start: 20100301, end: 20110121

REACTIONS (6)
  - FATIGUE [None]
  - DIARRHOEA [None]
  - NAUSEA [None]
  - ABDOMINAL DISTENSION [None]
  - ASTHENIA [None]
  - DEPRESSION [None]
